FAERS Safety Report 8229453-8 (Version None)
Quarter: 2012Q1

REPORT INFORMATION
  Report Type: 
  Country: None (occurrence: None)
  Receive Date: 20120322
  Receipt Date: 20120320
  Transmission Date: 20120608
  Serious: Yes (Other)
  Sender: FDA-Public Use
  Company Number: CO-BIOMARINP-002389

PATIENT
  Age: 10 Year
  Sex: Female
  Weight: 16.6 kg

DRUGS (3)
  1. NAGLAZYME [Suspect]
     Indication: MUCOPOLYSACCHARIDOSIS VI
     Route: 041
     Dates: start: 20091111
  2. LORATADINE [Concomitant]
     Indication: PREMEDICATION
  3. HYDROCORTISONE [Concomitant]

REACTIONS (3)
  - INFUSION RELATED REACTION [None]
  - ANGIOEDEMA [None]
  - URTICARIA [None]
